FAERS Safety Report 21625421 (Version 6)
Quarter: 2023Q1

REPORT INFORMATION
  Report Type: Report from Study
  Country: CN (occurrence: None)
  Receive Date: 20221122
  Receipt Date: 20230209
  Transmission Date: 20230417
  Serious: Yes (Death, Hospitalization)
  Sender: FDA-Public Use
  Company Number: CN-ROCHE-3150067

PATIENT
  Age: 54 Year
  Sex: Female
  Weight: 64 kg

DRUGS (41)
  1. ATEZOLIZUMAB [Suspect]
     Active Substance: ATEZOLIZUMAB
     Indication: Metastatic gastric cancer
     Dosage: ON 15/JUN/2022 AND 13/OCT/2022, MOST RECENT DOSE OF ATEZOLIZUMAB WAS ADMINISTERED PRIOR TO ADVERSE E
     Route: 041
     Dates: start: 20220615
  2. TIRAGOLUMAB [Suspect]
     Active Substance: TIRAGOLUMAB
     Indication: Metastatic gastric cancer
     Dosage: ON 15/JUN/2022 AND 13/OCT/2022, MOST RECENT DOSE OF TIRAGOLUMAB WAS ADMINISTERED PRIOR TO ADVERSE EV
     Route: 042
     Dates: start: 20220615
  3. CAPECITABINE [Suspect]
     Active Substance: CAPECITABINE
     Indication: Metastatic gastric cancer
     Dosage: ON 28/JUN/2022 AND 27/SEP/2022 (1000 MG), MOST RECENT DOSE OF CAPACETABINE WAS ADMINISTERED PRIOR TO
     Route: 048
     Dates: start: 20220615
  4. OXALIPLATIN [Suspect]
     Active Substance: OXALIPLATIN
     Indication: Metastatic gastric cancer
     Dosage: ON 15/JUN/2022 AND 13/OCT/2022, MOST RECENT DOSE (158 MG) OF OXALIPLATIN WAS ADMINISTERED PRIOR TO A
     Route: 042
     Dates: start: 20220615
  5. OXYCODONE HYDROCHLORIDE [Concomitant]
     Active Substance: OXYCODONE HYDROCHLORIDE
     Dates: start: 20220519, end: 20220609
  6. OXYCODONE HYDROCHLORIDE [Concomitant]
     Active Substance: OXYCODONE HYDROCHLORIDE
     Dates: start: 20220609, end: 20220628
  7. OXYCODONE HYDROCHLORIDE [Concomitant]
     Active Substance: OXYCODONE HYDROCHLORIDE
     Dates: start: 20220629, end: 20220704
  8. OXYCODONE HYDROCHLORIDE [Concomitant]
     Active Substance: OXYCODONE HYDROCHLORIDE
     Dates: start: 20220706, end: 20220706
  9. CELECOXIB [Concomitant]
     Active Substance: CELECOXIB
     Dates: start: 20220519, end: 20220609
  10. BICYCLOL [Concomitant]
     Active Substance: BICYCLOL
     Indication: Alanine aminotransferase increased
     Route: 048
     Dates: start: 20220606, end: 20220616
  11. BICYCLOL [Concomitant]
     Active Substance: BICYCLOL
     Route: 048
     Dates: start: 20220727, end: 20220801
  12. BICYCLOL [Concomitant]
     Active Substance: BICYCLOL
     Route: 048
     Dates: start: 20221118, end: 20221128
  13. ETHAMSYLATE [Concomitant]
     Active Substance: ETHAMSYLATE
     Indication: Haemostasis
     Dates: start: 20220609, end: 20220611
  14. AMINOMETHYLBENZOIC ACID [Concomitant]
     Active Substance: AMINOMETHYLBENZOIC ACID
     Indication: Haemostasis
     Dates: start: 20220609, end: 20220611
  15. ESOMEPRAZOLE SODIUM [Concomitant]
     Active Substance: ESOMEPRAZOLE SODIUM
     Dates: start: 20220609, end: 20220613
  16. HEMOCOAGULASE ATROX [Concomitant]
     Indication: Haemostasis
     Dates: start: 20220609, end: 20220609
  17. LACTULOSE [Concomitant]
     Active Substance: LACTULOSE
     Indication: Constipation
     Dates: start: 20220611, end: 20220624
  18. METOCLOPRAMIDE [Concomitant]
     Active Substance: METOCLOPRAMIDE
     Indication: Prophylaxis of nausea and vomiting
     Dates: start: 20220615, end: 20220616
  19. GRANISETRON HYDROCHLORIDE [Concomitant]
     Active Substance: GRANISETRON HYDROCHLORIDE
     Indication: Nausea
     Dates: start: 20220615, end: 20220615
  20. GRANISETRON HYDROCHLORIDE [Concomitant]
     Active Substance: GRANISETRON HYDROCHLORIDE
     Indication: Vomiting
     Dates: start: 20220705, end: 20220705
  21. GRANISETRON HYDROCHLORIDE [Concomitant]
     Active Substance: GRANISETRON HYDROCHLORIDE
     Dates: start: 20220709, end: 20220711
  22. GRANISETRON HYDROCHLORIDE [Concomitant]
     Active Substance: GRANISETRON HYDROCHLORIDE
     Dates: start: 20220801, end: 20220801
  23. ONDANSETRON HYDROCHLORIDE [Concomitant]
     Active Substance: ONDANSETRON HYDROCHLORIDE
     Indication: Nausea
     Dates: start: 20220616, end: 20220617
  24. SODIUM BICARBONATE RINGER^S [Concomitant]
     Indication: Decreased appetite
     Dates: start: 20220706, end: 20220706
  25. ZOLEDRONIC ACID [Concomitant]
     Active Substance: ZOLEDRONIC ACID
     Dates: start: 20220707, end: 20220707
  26. POTASSIUM CHLORIDE [Concomitant]
     Active Substance: POTASSIUM CHLORIDE
     Indication: Decreased appetite
     Dates: start: 20220708, end: 20220711
  27. SODIUM POTASSIUM MAGNESIUM CALCIUM AND GLUCOSE [Concomitant]
     Indication: Decreased appetite
     Dates: start: 20220708, end: 20220712
  28. CODEINE PHOSPHATE AND PLATYCODON TABLETS [Concomitant]
     Indication: Upper respiratory tract infection
     Dates: start: 20220712, end: 20220714
  29. CHYMOTRYPSIN [Concomitant]
     Active Substance: CHYMOTRYPSIN
     Indication: Upper respiratory tract infection
     Dates: start: 20220712, end: 20220714
  30. GENTAMICIN SULFATE [Concomitant]
     Active Substance: GENTAMICIN SULFATE
     Indication: Upper respiratory tract infection
     Dates: start: 20220712, end: 20220714
  31. ESOMEPRAZOLE [Concomitant]
     Active Substance: ESOMEPRAZOLE
     Dates: start: 20220708, end: 20220711
  32. PREGABALIN [Concomitant]
     Active Substance: PREGABALIN
     Indication: Pain
     Dates: start: 20220728, end: 20220913
  33. PREGABALIN [Concomitant]
     Active Substance: PREGABALIN
     Route: 048
     Dates: start: 20221001, end: 20221128
  34. HERBALS\DIAMMONIUM GLYCYRRHIZINATE [Concomitant]
     Active Substance: HERBALS\DIAMMONIUM GLYCYRRHIZINATE
     Indication: Alanine aminotransferase increased
     Dosage: ENTERIC COATED
     Route: 048
     Dates: start: 20220802, end: 20220913
  35. HERBALS\DIAMMONIUM GLYCYRRHIZINATE [Concomitant]
     Active Substance: HERBALS\DIAMMONIUM GLYCYRRHIZINATE
     Indication: Aspartate aminotransferase increased
     Dosage: ENTERIC COATED
     Route: 048
     Dates: start: 20221013, end: 20221106
  36. HERBALS\DIAMMONIUM GLYCYRRHIZINATE [Concomitant]
     Active Substance: HERBALS\DIAMMONIUM GLYCYRRHIZINATE
     Dosage: ENTERIC COATED
     Route: 048
     Dates: start: 20221201, end: 20221202
  37. METHYLCOBALAMIN [Concomitant]
     Active Substance: METHYLCOBALAMIN
     Indication: Herpes zoster
     Route: 048
     Dates: start: 20221001, end: 20221106
  38. RIBAVIRIN [Concomitant]
     Active Substance: RIBAVIRIN
     Indication: Upper respiratory tract infection
     Dates: start: 20220712, end: 20220712
  39. FUSIDIC ACID [Concomitant]
     Active Substance: FUSIDIC ACID
     Indication: Herpes zoster
     Route: 061
     Dates: start: 20221003, end: 20221106
  40. ESOMEPRAZOLE MAGNESIUM [Concomitant]
     Active Substance: ESOMEPRAZOLE MAGNESIUM
     Dates: start: 20221116, end: 20221128
  41. DOMPERIDONE [Concomitant]
     Active Substance: DOMPERIDONE
     Dates: start: 20221118, end: 20221122

REACTIONS (2)
  - Alanine aminotransferase increased [Recovered/Resolved]
  - Hepatic failure [Fatal]

NARRATIVE: CASE EVENT DATE: 20220704
